FAERS Safety Report 20954571 (Version 2)
Quarter: 2024Q3

REPORT INFORMATION
  Report Type: Spontaneous
  Country: US (occurrence: US)
  Receive Date: 20220614
  Receipt Date: 20240712
  Transmission Date: 20241017
  Serious: No
  Sender: PIERRE FABRE MEDICAMENT
  Company Number: US-PFM-2021-12552

PATIENT
  Sex: Male
  Weight: 8 kg

DRUGS (1)
  1. HEMANGEOL [Suspect]
     Active Substance: PROPRANOLOL HYDROCHLORIDE
     Indication: Haemangioma
     Dosage: 2 ML, BID (2/DAY)
     Route: 048

REACTIONS (3)
  - Respiratory syncytial virus infection [Not Recovered/Not Resolved]
  - Haemangioma [Unknown]
  - Condition aggravated [Not Recovered/Not Resolved]
